FAERS Safety Report 5807598-7 (Version None)
Quarter: 2008Q3

REPORT INFORMATION
  Report Type: 
  Country: None (occurrence: None)
  Receive Date: 20080711
  Receipt Date: 20010727
  Transmission Date: 20090109
  Serious: Yes (Death, Life-Threatening, Hospitalization)
  Sender: FDA-Public Use
  Company Number: US-BAXTER-2008BH006262

PATIENT
  Age: 59 Year
  Sex: Male

DRUGS (1)
  1. CEFTRIAXONE [Suspect]
     Indication: OSTEOMYELITIS
     Route: 042
     Dates: start: 20010704, end: 20010719

REACTIONS (2)
  - COMA [None]
  - SEPSIS [None]
